FAERS Safety Report 5181306-8 (Version None)
Quarter: 2006Q4

REPORT INFORMATION
  Report Type: 
  Country: None (occurrence: None)
  Receive Date: 20061220
  Receipt Date: 20051205
  Transmission Date: 20070319
  Serious: No
  Sender: FDA-Public Use
  Company Number: US-GLAXOSMITHKLINE-A0584632A

PATIENT
  Age: 74 Year
  Sex: Female

DRUGS (3)
  1. COMMIT [Suspect]
     Dates: start: 20051201
  2. NICODERM CQ [Suspect]
  3. NICORETTE [Suspect]

REACTIONS (6)
  - DYSARTHRIA [None]
  - EATING DISORDER [None]
  - FEELING ABNORMAL [None]
  - HEART RATE INCREASED [None]
  - MOUTH ULCERATION [None]
  - SOMNOLENCE [None]
